FAERS Safety Report 6102143-3 (Version None)
Quarter: 2009Q1

REPORT INFORMATION
  Report Type: 
  Country: None (occurrence: None)
  Receive Date: 20090303
  Receipt Date: 20090303
  Transmission Date: 20090719
  Serious: Yes (Other)
  Sender: FDA-Public Use
  Company Number: None

PATIENT
  Sex: Female
  Weight: 47.78 kg

DRUGS (2)
  1. CEFTAZIDIME [Suspect]
     Dates: start: 20081207, end: 20081208
  2. METRONIDAZOLE [Suspect]
     Dates: start: 20081207, end: 20081208

REACTIONS (1)
  - RASH MACULO-PAPULAR [None]
